FAERS Safety Report 6543942-3 (Version None)
Quarter: 2010Q1

REPORT INFORMATION
  Report Type: 
  Country: None (occurrence: None)
  Receive Date: 20100120
  Receipt Date: 20100111
  Transmission Date: 20100710
  Serious: Yes (Hospitalization)
  Sender: FDA-Public Use
  Company Number: FR-ELI_LILLY_AND_COMPANY-FR201001001491

PATIENT
  Sex: Female

DRUGS (9)
  1. BYETTA [Suspect]
     Indication: TYPE 2 DIABETES MELLITUS
     Dosage: 5 UG, 2/D
     Route: 058
     Dates: start: 20091012, end: 20091114
  2. BYETTA [Suspect]
     Dosage: 10 UG, 2/D
     Route: 058
     Dates: start: 20091115, end: 20091130
  3. LEVOTHYROXINE SODIUM [Concomitant]
     Dosage: 25 UG, DAILY (1/D)
     Route: 048
  4. MEDIATOR [Concomitant]
     Dosage: UNK, UNKNOWN
     Route: 065
  5. LIPUR [Concomitant]
     Dosage: UNK, UNKNOWN
     Route: 065
  6. DIAMICRON [Concomitant]
     Dosage: UNK, UNKNOWN
     Route: 065
  7. SECTRAL [Concomitant]
     Dosage: UNK, UNKNOWN
     Route: 065
  8. SEROPRAM [Concomitant]
     Dosage: UNK, UNKNOWN
     Route: 065
  9. NEXIUM [Concomitant]
     Dosage: UNK, UNKNOWN
     Route: 065

REACTIONS (5)
  - HEAD INJURY [None]
  - HEADACHE [None]
  - HYPERHIDROSIS [None]
  - LOSS OF CONSCIOUSNESS [None]
  - VERTIGO [None]
